FAERS Safety Report 8262277-4 (Version None)
Quarter: 2012Q2

REPORT INFORMATION
  Report Type: 
  Country: None (occurrence: None)
  Receive Date: 20120405
  Receipt Date: 20120327
  Transmission Date: 20120825
  Serious: Yes (Hospitalization, Other)
  Sender: FDA-Public Use
  Company Number: US-ELI_LILLY_AND_COMPANY-US201203008753

PATIENT
  Sex: Female

DRUGS (8)
  1. ZOCOR [Concomitant]
     Dosage: 20 MG, EACH EVENING
  2. ASPIRIN [Concomitant]
     Dosage: 81 MG, UNK
  3. LISINOPRIL [Concomitant]
     Dosage: 2.5 MG, QD
  4. WELLBUTRIN [Concomitant]
     Dosage: 100 MG, BID
  5. METOPROLOL SUCCINATE [Concomitant]
     Dosage: 25 MG, BID
  6. LASIX [Concomitant]
     Dosage: 80 MG, QD
  7. EFFIENT [Suspect]
     Indication: MYOCARDIAL INFARCTION
     Dosage: 10 MG, QD
     Dates: start: 20110801
  8. XANAX [Concomitant]
     Indication: ANXIETY
     Dosage: 5 MG, TID, PRN

REACTIONS (1)
  - CARDIAC FAILURE [None]
